FAERS Safety Report 6525387-5 (Version None)
Quarter: 2009Q4

REPORT INFORMATION
  Report Type: 
  Country: None (occurrence: None)
  Receive Date: 20091214
  Receipt Date: 20090330
  Transmission Date: 20100525
  Serious: Yes (Hospitalization)
  Sender: FDA-Public Use
  Company Number: 625009

PATIENT
  Age: 52 Year
  Sex: Male
  Weight: 99.8 kg

DRUGS (2)
  1. PEGASYS [Suspect]
     Indication: DRUG USE FOR UNKNOWN INDICATION
     Dosage: 180 UG
     Dates: start: 20080202, end: 20080626
  2. COPEGUS [Suspect]
     Indication: DRUG USE FOR UNKNOWN INDICATION
     Dosage: 1200 MG
     Dates: start: 20080202, end: 20080626

REACTIONS (1)
  - PULMONARY EMBOLISM [None]
